FAERS Safety Report 13077830 (Version 1)
Quarter: 2017Q1

REPORT INFORMATION
  Report Type: Report from Study
  Country: None (occurrence: TW)
  Receive Date: 20170102
  Receipt Date: 20170102
  Transmission Date: 20170428
  Serious: Yes (Hospitalization)
  Sender: FDA-Public Use
  Company Number: TW-ABBVIE-16K-153-1771436-00

PATIENT
  Age: 69 Year
  Sex: Female

DRUGS (2)
  1. METHOTREXATE. [Concomitant]
     Active Substance: METHOTREXATE
     Indication: RHEUMATOID ARTHRITIS
     Dosage: 10-15 MG
     Route: 048
     Dates: start: 20160909
  2. HUMIRA [Suspect]
     Active Substance: ADALIMUMAB
     Indication: RHEUMATOID ARTHRITIS
     Route: 058
     Dates: start: 20160127, end: 20161004

REACTIONS (3)
  - Cardiomegaly [Unknown]
  - Pneumonia cryptococcal [Recovering/Resolving]
  - Aortic disorder [Unknown]

NARRATIVE: CASE EVENT DATE: 201610
